FAERS Safety Report 14046097 (Version 4)
Quarter: 2018Q2

REPORT INFORMATION
  Report Type: Report from Study
  Country: GB (occurrence: GB)
  Receive Date: 20171005
  Receipt Date: 20180409
  Transmission Date: 20180711
  Serious: Yes (Other)
  Sender: FDA-Public Use
  Company Number: GB-JNJFOC-20170111012

PATIENT
  Age: 63 Year
  Sex: Female

DRUGS (2)
  1. FLUCLOX [Suspect]
     Active Substance: FLUCLOXACILLIN
     Indication: PRODUCT USED FOR UNKNOWN INDICATION
     Route: 048
  2. SIMPONI [Suspect]
     Active Substance: GOLIMUMAB
     Indication: PRODUCT USED FOR UNKNOWN INDICATION
     Route: 058
     Dates: start: 20170109

REACTIONS (14)
  - Abdominal pain upper [Recovered/Resolved]
  - Dyspnoea [Not Recovered/Not Resolved]
  - Fibromyalgia [Unknown]
  - Pustular psoriasis [Not Recovered/Not Resolved]
  - Abulia [Recovering/Resolving]
  - Feeling cold [Unknown]
  - Facial neuralgia [Unknown]
  - Arthralgia [Not Recovered/Not Resolved]
  - Gastrointestinal pain [Not Recovered/Not Resolved]
  - Headache [Recovering/Resolving]
  - Skin infection [Unknown]
  - Feeling jittery [Unknown]
  - Muscular weakness [Recovering/Resolving]
  - Skin discolouration [Not Recovered/Not Resolved]

NARRATIVE: CASE EVENT DATE: 201701
